FAERS Safety Report 8774891 (Version 2)
Quarter: 2012Q4

REPORT INFORMATION
  Report Type: 
  Country: DE (occurrence: DE)
  Receive Date: 20120910
  Receipt Date: 20121101
  Transmission Date: 20130627
  Serious: Yes (Death)
  Sender: FDA-Public Use
  Company Number: DE-MERCK-1209DEU001270

PATIENT
  Age: 38 Year
  Sex: Female
  Weight: 110 kg

DRUGS (5)
  1. VICTRELIS [Suspect]
     Indication: HEPATITIS C
     Dosage: 2400 mg, daily. (also reported as 3x400 mg daily)
     Route: 048
     Dates: start: 20110927
  2. PEGASYS [Suspect]
     Indication: HEPATITIS C
     Dosage: 180 Microgram, qw
     Route: 058
     Dates: start: 20110829
  3. COPEGUS [Suspect]
     Indication: HEPATITIS C
     Dosage: 800 mg, daily
     Route: 048
     Dates: start: 20110829
  4. POLAMIDON [Concomitant]
     Indication: DRUG THERAPY
     Dosage: 45 mg, daily
  5. CITALOPRAM [Concomitant]
     Indication: DEPRESSION
     Dosage: 30 mg, daily
     Route: 048

REACTIONS (2)
  - Death [Fatal]
  - Feeling abnormal [Unknown]
